FAERS Safety Report 5801424-8 (Version None)
Quarter: 2008Q3

REPORT INFORMATION
  Report Type: 
  Country: None (occurrence: None)
  Receive Date: 20080703
  Receipt Date: 20080703
  Transmission Date: 20090109
  Serious: Yes (Life-Threatening)
  Sender: FDA-Public Use
  Company Number: None

PATIENT
  Age: 70 Year
  Sex: Female
  Weight: 72 kg

DRUGS (1)
  1. CARIMUNE [Suspect]
     Indication: STEVENS-JOHNSON SYNDROME
     Dosage: 216 GRAMS OVER 4 DAYS IV DRIP
     Route: 042
     Dates: start: 20080618, end: 20080621

REACTIONS (2)
  - HAEMODIALYSIS [None]
  - RENAL FAILURE [None]
